FAERS Safety Report 8196356 (Version 3)
Quarter: 2013Q2

REPORT INFORMATION
  Report Type: Spontaneous
  Country: US (occurrence: US)
  Receive Date: 20111024
  Receipt Date: 20130405
  Transmission Date: 20140414
  Serious: Yes (Hospitalization, Other)
  Sender: FDA-Public Use
  Company Number: US-BAYER-2011-099007

PATIENT
  Age: 32 Year
  Sex: Female
  Weight: 80.27 kg

DRUGS (7)
  1. OCELLA [Suspect]
     Indication: CONTRACEPTION
     Dosage: UNK
     Dates: start: 200811, end: 20090610
  2. OCELLA [Suspect]
     Indication: ACNE
  3. YAZ [Suspect]
     Indication: CONTRACEPTION
     Dosage: UNK UNK, QD
     Route: 048
     Dates: start: 2007, end: 200805
  4. YAZ [Suspect]
     Indication: ACNE
  5. YASMIN [Suspect]
     Indication: CONTRACEPTION
     Dosage: UNK
     Dates: start: 200311, end: 200603
  6. YASMIN [Suspect]
     Indication: ACNE
     Dosage: UNK
     Dates: start: 2008, end: 200901
  7. METRONIDAZOLE [Concomitant]
     Dosage: UNK
     Route: 067
     Dates: start: 20090416

REACTIONS (13)
  - Pulmonary embolism [Recovered/Resolved]
  - Cholecystitis [None]
  - Cholecystectomy [None]
  - General physical health deterioration [None]
  - Emotional distress [None]
  - Anxiety [None]
  - Chest pain [Recovered/Resolved]
  - Pain [Recovered/Resolved]
  - Pneumonitis [None]
  - Muscle spasms [Recovered/Resolved]
  - Insomnia [None]
  - Fear of disease [None]
  - Anxiety [None]
